FAERS Safety Report 8761721 (Version 2)
Quarter: 2012Q4

REPORT INFORMATION
  Report Type: Spontaneous
  Country: GB (occurrence: None)
  Receive Date: 20120822
  Receipt Date: 20120913
  Transmission Date: 20130627
  Serious: Yes (Hospitalization, Other)
  Sender: FDA-Public Use
  Company Number: 2012MA009751

PATIENT
  Age: 74 Year
  Sex: Female
  Weight: 43 kg

DRUGS (6)
  1. VENLAFAXINE HYDROCHLORIDE [Suspect]
     Indication: DEPRESSION
  2. L-THYROXINE [Concomitant]
  3. BISOPROLOL [Concomitant]
  4. SALMETROL/FLUTICASONE (SERETIDE /01420901/) [Concomitant]
  5. FENOTEROL [Concomitant]
  6. IPRATROPRIUM BROMIDE [Concomitant]

REACTIONS (7)
  - Lung infection [None]
  - Hyponatraemia [None]
  - Inappropriate antidiuretic hormone secretion [None]
  - Convulsion [None]
  - Decreased appetite [None]
  - Delirium [None]
  - Somnolence [None]
